FAERS Safety Report 16022887 (Version 3)
Quarter: 2021Q2

REPORT INFORMATION
  Report Type: Spontaneous
  Country: US (occurrence: US)
  Receive Date: 20190301
  Receipt Date: 20210519
  Transmission Date: 20210716
  Serious: Yes (Other)
  Sender: FDA-Public Use
  Company Number: US-PFIZER INC-2019089074

PATIENT
  Sex: Female

DRUGS (1)
  1. DEPO?PROVERA [Suspect]
     Active Substance: MEDROXYPROGESTERONE ACETATE
     Indication: CONTRACEPTION
     Dosage: 1 DF (ONE SHOT)
     Dates: start: 20100818, end: 20100818

REACTIONS (33)
  - Illness [Not Recovered/Not Resolved]
  - Disability [Unknown]
  - Headache [Unknown]
  - Palpitations [Unknown]
  - Hormone level abnormal [Unknown]
  - Hypovitaminosis [Unknown]
  - Irritable bowel syndrome [Unknown]
  - Tinnitus [Unknown]
  - Maternal exposure during pregnancy [Unknown]
  - Endocrine disorder [Unknown]
  - Infertility [Unknown]
  - Dry eye [Unknown]
  - Alopecia [Unknown]
  - Drug ineffective [Unknown]
  - Depression [Unknown]
  - Neck pain [Unknown]
  - Tooth fracture [Unknown]
  - Diarrhoea [Unknown]
  - Malaise [Unknown]
  - Weight increased [Unknown]
  - Back pain [Unknown]
  - Nervous system disorder [Unknown]
  - Dyspnoea [Unknown]
  - Onychomycosis [Unknown]
  - Autoimmune thyroiditis [Unknown]
  - Arthralgia [Unknown]
  - Amnesia [Unknown]
  - Abortion spontaneous [Unknown]
  - Fatigue [Unknown]
  - Anxiety [Unknown]
  - Heavy menstrual bleeding [Unknown]
  - Plantar fasciitis [Unknown]
  - Rhinorrhoea [Unknown]
